FAERS Safety Report 7774490-0 (Version None)
Quarter: 2011Q3

REPORT INFORMATION
  Report Type: 
  Country: None (occurrence: None)
  Receive Date: 20110923
  Receipt Date: 20110913
  Transmission Date: 20111222
  Serious: Yes (Hospitalization)
  Sender: FDA-Public Use
  Company Number: JP-ROCHE-801633

PATIENT
  Age: 64 Year
  Sex: Male

DRUGS (11)
  1. NEORAL [Suspect]
     Route: 048
  2. NEORAL [Suspect]
     Route: 048
  3. NEORAL [Suspect]
     Route: 048
  4. NEORAL [Suspect]
     Indication: COLITIS ULCERATIVE
     Route: 048
     Dates: start: 20070101, end: 20070101
  5. IMURAN [Suspect]
     Indication: COLITIS ULCERATIVE
     Route: 048
     Dates: start: 20070101, end: 20070101
  6. PREDNISOLONE [Suspect]
     Indication: COLITIS ULCERATIVE
     Route: 065
     Dates: start: 20070101
  7. GANCICLOVIR SODIUM [Suspect]
     Indication: CYTOMEGALOVIRUS TEST POSITIVE
     Route: 041
     Dates: start: 20070101
  8. CYCLOSPORINE [Suspect]
     Indication: COLITIS ULCERATIVE
     Route: 041
     Dates: start: 20070101, end: 20070101
  9. CYCLOSPORINE [Suspect]
     Route: 041
     Dates: start: 20070101
  10. CYCLOSPORINE [Suspect]
     Route: 041
  11. IMURAN [Suspect]
     Route: 048
     Dates: start: 20070101, end: 20070101

REACTIONS (4)
  - MYELODYSPLASTIC SYNDROME [None]
  - RENAL FAILURE ACUTE [None]
  - CARDIAC FAILURE [None]
  - PANCYTOPENIA [None]
